FAERS Safety Report 16796176 (Version 1)
Quarter: 2019Q3

REPORT INFORMATION
  Report Type: Spontaneous
  Country: US (occurrence: US)
  Receive Date: 20190911
  Receipt Date: 20190911
  Transmission Date: 20191005
  Serious: Yes (Other)
  Sender: FDA-Public Use
  Company Number: US-TEVA-2019-US-1106635

PATIENT
  Age: 64 Year
  Sex: Female
  Weight: 58.05 kg

DRUGS (4)
  1. MUCUS D [Suspect]
     Active Substance: GUAIFENESIN\PSEUDOEPHEDRINE HYDROCHLORIDE
     Indication: INCREASED UPPER AIRWAY SECRETION
     Dosage: PSEUDOEPHEDRINE HYDROCHLORIDE 60 MG, GUAIFENESIN 600 MG:2 TABLETS SINGLE
     Route: 048
     Dates: start: 20190901, end: 20190901
  2. MUCUS D [Suspect]
     Active Substance: GUAIFENESIN\PSEUDOEPHEDRINE HYDROCHLORIDE
     Indication: COUGH
  3. CEFDINIR. [Concomitant]
     Active Substance: CEFDINIR
     Dates: start: 20190827
  4. PRAVASTATIN. [Concomitant]
     Active Substance: PRAVASTATIN
     Dates: start: 1999

REACTIONS (8)
  - Dizziness [Recovered/Resolved]
  - Hypersensitivity [Recovering/Resolving]
  - Nausea [Recovered/Resolved]
  - Tremor [Recovering/Resolving]
  - Dry mouth [Recovering/Resolving]
  - Syncope [Recovered/Resolved]
  - Heart rate increased [Recovered/Resolved]
  - Chest pain [Recovered/Resolved]

NARRATIVE: CASE EVENT DATE: 20190901
